FAERS Safety Report 7969604-3 (Version None)
Quarter: 2011Q4

REPORT INFORMATION
  Report Type: 
  Country: None (occurrence: None)
  Receive Date: 20111212
  Receipt Date: 20111207
  Transmission Date: 20120403
  Serious: Yes (Hospitalization, Other)
  Sender: FDA-Public Use
  Company Number: IL-PFIZER INC-2011048800

PATIENT
  Age: 73 Year
  Sex: Female

DRUGS (3)
  1. SUTENT [Suspect]
     Dosage: 25 MG, 1X/DAY CYCLE 10
     Route: 048
     Dates: start: 20110801
  2. SUTENT [Suspect]
     Dosage: 37.5 MG, UNK
     Dates: start: 20110301
  3. SUTENT [Suspect]
     Indication: METASTATIC RENAL CELL CARCINOMA
     Dosage: 50 MG, 1X/DAY, 4 WEEKS ON, 2 WEEKS OFF
     Route: 048
     Dates: start: 20100701

REACTIONS (2)
  - CEREBROVASCULAR ACCIDENT [None]
  - BLOOD CREATININE INCREASED [None]
